FAERS Safety Report 6375706-8 (Version None)
Quarter: 2009Q3

REPORT INFORMATION
  Report Type: 
  Country: None (occurrence: None)
  Receive Date: 20090921
  Receipt Date: 20090910
  Transmission Date: 20100115
  Serious: Yes (Hospitalization)
  Sender: FDA-Public Use
  Company Number: 2009AL001475

PATIENT
  Age: 81 Year
  Sex: Female

DRUGS (22)
  1. DIGOXIN [Suspect]
     Dosage: 0.25MG, DAILY, PO
     Route: 048
  2. GLIPIZIDE [Concomitant]
  3. SYNTHROID [Concomitant]
  4. TOPROL-XL [Concomitant]
  5. AMBIEN [Concomitant]
  6. VALIUM [Concomitant]
  7. CENTRUM [Concomitant]
  8. PAXIL [Concomitant]
  9. METFORMIN [Concomitant]
  10. COLACE [Concomitant]
  11. GLUCOPHAGE [Concomitant]
  12. NITROGLYCERIN [Concomitant]
  13. ASPIRIN [Concomitant]
  14. PLAVIX [Concomitant]
  15. NASONEX [Concomitant]
  16. DULCOLAX [Concomitant]
  17. MULTI-VITAMINS [Concomitant]
  18. LORTAB [Concomitant]
  19. GLUCOTROL [Concomitant]
  20. ALTACE [Concomitant]
  21. LASIX [Concomitant]
  22. RAMIPRIL [Concomitant]

REACTIONS (13)
  - ANXIETY [None]
  - AORTIC VALVE INCOMPETENCE [None]
  - CARDIAC FLUTTER [None]
  - CORONARY ARTERY DISEASE [None]
  - FEAR [None]
  - FEELING ABNORMAL [None]
  - HYPERHIDROSIS [None]
  - INJURY [None]
  - MITRAL VALVE CALCIFICATION [None]
  - MITRAL VALVE INCOMPETENCE [None]
  - NAUSEA [None]
  - SURGERY [None]
  - TRICUSPID VALVE INCOMPETENCE [None]
